FAERS Safety Report 8059283-1 (Version None)
Quarter: 2012Q1

REPORT INFORMATION
  Report Type: 
  Country: None (occurrence: None)
  Receive Date: 20120120
  Receipt Date: 20120113
  Transmission Date: 20120608
  Serious: Yes (Other)
  Sender: FDA-Public Use
  Company Number: US-PFIZER INC-2012011054

PATIENT
  Sex: Male

DRUGS (2)
  1. NEURONTIN [Suspect]
     Indication: NEUROPATHY PERIPHERAL
     Dosage: UNK
  2. LYRICA [Suspect]
     Indication: NEUROPATHY PERIPHERAL
     Dosage: 600 MG, UNK
     Route: 048

REACTIONS (6)
  - PAIN [None]
  - FALL [None]
  - DRUG INEFFECTIVE [None]
  - HYPOAESTHESIA [None]
  - CARDIAC DISORDER [None]
  - MEMORY IMPAIRMENT [None]
